FAERS Safety Report 8009561-7 (Version None)
Quarter: 2011Q4

REPORT INFORMATION
  Report Type: 
  Country: None (occurrence: None)
  Receive Date: 20111227
  Receipt Date: 20111209
  Transmission Date: 20120403
  Serious: Yes (Hospitalization, Other)
  Sender: FDA-Public Use
  Company Number: PHHY2011CZ108015

PATIENT
  Age: 48 Year
  Sex: Female

DRUGS (3)
  1. ZOLEDRONIC ACID [Suspect]
     Dosage: UNK UKN, UNK
     Dates: end: 20051201
  2. GEMCITABINE [Concomitant]
  3. ZOLEDRONIC ACID [Suspect]
     Dosage: UNK UKN, UNK
     Dates: start: 20080701

REACTIONS (17)
  - RECURRENT CANCER [None]
  - LIVER DISORDER [None]
  - CARBOHYDRATE ANTIGEN 15-3 INCREASED [None]
  - LYMPHOEDEMA [None]
  - DECREASED APPETITE [None]
  - ASTHENIA [None]
  - HYPOPITUITARISM [None]
  - ILEUS [None]
  - ERYSIPELAS [None]
  - POLYURIA [None]
  - JAUNDICE [None]
  - GENERAL PHYSICAL HEALTH DETERIORATION [None]
  - DEPRESSION [None]
  - WEIGHT DECREASED [None]
  - ECHOGRAPHY ABNORMAL [None]
  - PITUITARY CANCER METASTATIC [None]
  - THIRST [None]
